FAERS Safety Report 6647878-9 (Version None)
Quarter: 2010Q1

REPORT INFORMATION
  Report Type: 
  Country: None (occurrence: None)
  Receive Date: 20100324
  Receipt Date: 20100312
  Transmission Date: 20100710
  Serious: Yes (Hospitalization)
  Sender: FDA-Public Use
  Company Number: US-JNJFOC-20100208128

PATIENT
  Sex: Female
  Weight: 54.43 kg

DRUGS (10)
  1. SIMPONI [Suspect]
     Indication: RHEUMATOID ARTHRITIS
     Route: 058
  2. CALCIUM CITRATE [Concomitant]
     Indication: VITAMIN SUPPLEMENTATION
  3. VICODIN [Concomitant]
     Indication: PAIN
  4. FOLIC ACID [Concomitant]
     Indication: RHEUMATOID ARTHRITIS
  5. METHOTREXATE [Concomitant]
     Indication: RHEUMATOID ARTHRITIS
  6. IBUPROFEN [Concomitant]
     Indication: RHEUMATOID ARTHRITIS
  7. ARAVA [Concomitant]
  8. FLEXERIL [Concomitant]
     Indication: MUSCLE SPASMS
  9. XANAX [Concomitant]
     Indication: SLEEP DISORDER
  10. PREDNISONE [Concomitant]

REACTIONS (4)
  - FALL [None]
  - INAPPROPRIATE SCHEDULE OF DRUG ADMINISTRATION [None]
  - LOWER LIMB FRACTURE [None]
  - MEDICAL DEVICE COMPLICATION [None]
